FAERS Safety Report 6630937-4 (Version None)
Quarter: 2010Q1

REPORT INFORMATION
  Report Type: 
  Country: None (occurrence: None)
  Receive Date: 20100311
  Receipt Date: 20100308
  Transmission Date: 20100710
  Serious: Yes (Hospitalization, Other)
  Sender: FDA-Public Use
  Company Number: DE-ABBOTT-10P-062-0622694-00

PATIENT
  Age: 79 Year
  Sex: Female

DRUGS (5)
  1. HUMIRA [Suspect]
     Indication: RHEUMATOID ARTHRITIS
     Dates: start: 20061201, end: 20070901
  2. HUMIRA [Suspect]
     Dates: start: 20080601
  3. ETANERCEPT [Concomitant]
     Indication: DRUG USE FOR UNKNOWN INDICATION
     Dosage: 50MG/200MG
     Dates: start: 20070901, end: 20080401
  4. LEFLUNOMIDE [Concomitant]
     Indication: DRUG USE FOR UNKNOWN INDICATION
     Dates: start: 20060601, end: 20070901
  5. METYSOLON [Concomitant]
     Indication: DRUG USE FOR UNKNOWN INDICATION

REACTIONS (14)
  - ABDOMINAL PAIN [None]
  - ABDOMINAL PAIN UPPER [None]
  - ABSCESS [None]
  - APPENDICITIS [None]
  - APPENDICITIS PERFORATED [None]
  - CHOLECYSTITIS [None]
  - DEHYDRATION [None]
  - ESCHERICHIA INFECTION [None]
  - NAUSEA [None]
  - PERITONITIS [None]
  - PYREXIA [None]
  - SEPTIC SHOCK [None]
  - STAPHYLOCOCCAL INFECTION [None]
  - VOMITING [None]
